FAERS Safety Report 4379858-0 (Version None)
Quarter: 2004Q2

REPORT INFORMATION
  Report Type: 
  Country: None (occurrence: None)
  Receive Date: 20040614
  Receipt Date: 20040601
  Transmission Date: 20050107
  Serious: Yes (Hospitalization)
  Sender: FDA-Public Use
  Company Number: 2004SE03088

PATIENT
  Age: 71 Year
  Sex: Female

DRUGS (3)
  1. AMIAS [Suspect]
     Indication: HYPERTENSION
     Dosage: 16 MG DAILY PO
     Route: 048
     Dates: start: 20031101, end: 20040414
  2. ATENOLOL [Concomitant]
  3. OMEPRAZOLE [Concomitant]

REACTIONS (1)
  - ALVEOLITIS [None]
